FAERS Safety Report 24054743 (Version 1)
Quarter: 2024Q3

REPORT INFORMATION
  Report Type: Spontaneous
  Country: US (occurrence: US)
  Receive Date: 20240705
  Receipt Date: 20240705
  Transmission Date: 20241017
  Serious: Yes (Life-Threatening, Hospitalization)
  Sender: ABBVIE
  Company Number: US-TEVA-VS-3214527

PATIENT
  Age: 30 Year
  Sex: Male

DRUGS (2)
  1. TESTOSTERONE [Suspect]
     Active Substance: TESTOSTERONE
     Indication: Muscle building therapy
     Route: 065
  2. TRENBOLONE [Suspect]
     Active Substance: TRENBOLONE
     Indication: Muscle building therapy
     Route: 065

REACTIONS (5)
  - Acute hepatic failure [Recovered/Resolved]
  - Haematemesis [Recovering/Resolving]
  - Brain oedema [Recovering/Resolving]
  - Drug abuse [Unknown]
  - Mental status changes [Recovering/Resolving]
